FAERS Safety Report 12193478 (Version 1)
Quarter: 2016Q1

REPORT INFORMATION
  Report Type: Other
  Country: DE (occurrence: DE)
  Receive Date: 20160320
  Receipt Date: 20160320
  Transmission Date: 20160526
  Serious: Yes (Other)
  Sender: FDA-Public Use
  Company Number: DE-SHIRE-DE201602793

PATIENT
  Age: 65 Year
  Sex: Male
  Weight: 67 kg

DRUGS (2)
  1. VITAMIN B12 [Concomitant]
     Active Substance: CYANOCOBALAMIN
     Indication: PRODUCT USED FOR UNKNOWN INDICATION
     Dosage: UNK, ONCE A MONTH
     Route: 065
  2. REVESTIVE [Suspect]
     Active Substance: TEDUGLUTIDE
     Indication: SHORT-BOWEL SYNDROME
     Dosage: 0.34 MG, 1X/DAY:QD
     Route: 058
     Dates: start: 20150721

REACTIONS (1)
  - Renal failure [Recovering/Resolving]

NARRATIVE: CASE EVENT DATE: 20160226
